FAERS Safety Report 4330633-2 (Version None)
Quarter: 2004Q1

REPORT INFORMATION
  Report Type: 
  Country: None (occurrence: None)
  Receive Date: 20040329
  Receipt Date: 20040316
  Transmission Date: 20041129
  Serious: Yes (Other)
  Sender: FDA-Public Use
  Company Number: 2004IM000461

PATIENT
  Age: 55 Year
  Sex: Female
  Weight: 88.905 kg

DRUGS (18)
  1. ACTIMMUNE [Suspect]
     Indication: INTERSTITIAL LUNG DISEASE
     Dosage: 200 UG; TIW; SUBCUTANEOUS
     Route: 058
     Dates: start: 20030301, end: 20040201
  2. PREDNISONE [Concomitant]
  3. SULFASALAZINE [Concomitant]
  4. AZATHIOPRINE [Concomitant]
  5. COLCHICINE [Concomitant]
  6. DILTIAZEM [Concomitant]
  7. VALTREX [Concomitant]
  8. ALLEGRA [Concomitant]
  9. IPRATROPIUM BROMIDE [Concomitant]
  10. ALBUTEROL [Concomitant]
  11. CLONOPIN [Concomitant]
  12. ZOLOFT [Concomitant]
  13. NEXIUM [Concomitant]
  14. ADVAIR DISKUS 100/50 [Concomitant]
  15. AMBIEN [Concomitant]
  16. POTASSIUM CHLORIDE [Concomitant]
  17. LASIX [Concomitant]
  18. LEVOXYL [Concomitant]

REACTIONS (2)
  - BRONCHOPULMONARY ASPERGILLOSIS [None]
  - SINUSITIS ASPERGILLUS [None]
